FAERS Safety Report 13444034 (Version 1)
Quarter: 2017Q2

REPORT INFORMATION
  Report Type: Spontaneous
  Country: US (occurrence: US)
  Receive Date: 20170414
  Receipt Date: 20170414
  Transmission Date: 20170830
  Serious: Yes (Other)
  Sender: FDA-Public Use
  Company Number: US-AMGEN-USASP2017055628

PATIENT
  Age: 10 Year
  Sex: Male

DRUGS (1)
  1. ARANESP [Suspect]
     Active Substance: DARBEPOETIN ALFA
     Indication: PRODUCT USED FOR UNKNOWN INDICATION
     Dosage: 25 MUG,//0.42ML Q2WK
     Route: 065
     Dates: start: 200703

REACTIONS (3)
  - Drug dispensing error [Unknown]
  - Drug dose omission [Unknown]
  - Chronic kidney disease [Unknown]
